FAERS Safety Report 4650613-7 (Version None)
Quarter: 2005Q2

REPORT INFORMATION
  Report Type: 
  Country: None (occurrence: None)
  Receive Date: 20050428
  Receipt Date: 20050428
  Transmission Date: 20051028
  Serious: No
  Sender: FDA-Public Use
  Company Number: None

PATIENT
  Sex: Female
  Weight: 101.8 kg

DRUGS (9)
  1. FLUOROURACIL [Suspect]
     Indication: ANAL CANCER
     Dates: start: 20050131
  2. CISPLATIN [Suspect]
  3. RADIOTHERAPY [Suspect]
  4. ALPRAZOLAM [Concomitant]
  5. ESTRATEST [Concomitant]
  6. IMODIUM [Concomitant]
  7. LOMOTIL [Concomitant]
  8. METFORMIN [Concomitant]
  9. ZYRTEC [Concomitant]

REACTIONS (4)
  - DEHYDRATION [None]
  - DIABETES MELLITUS [None]
  - DIARRHOEA [None]
  - FATIGUE [None]
